FAERS Safety Report 8997672 (Version 2)
Quarter: 2013Q1

REPORT INFORMATION
  Report Type: Spontaneous
  Country: US (occurrence: US)
  Receive Date: 20130104
  Receipt Date: 20130226
  Transmission Date: 20140127
  Serious: Yes (Hospitalization)
  Sender: FDA-Public Use
  Company Number: US-BAXTER-2012BAX029294

PATIENT
  Age: 63 Year
  Sex: Male

DRUGS (24)
  1. DIANEAL LOW CALCIUM [Suspect]
     Indication: PERITONEAL DIALYSIS
     Route: 033
  2. DIANEAL LOW CALCIUM [Suspect]
     Route: 033
  3. DIANEAL LOW CALCIUM [Suspect]
     Route: 033
  4. DIANEAL LOW CALCIUM [Suspect]
     Route: 033
     Dates: start: 20120911
  5. DIANEAL LOW CALCIUM [Suspect]
     Route: 033
     Dates: start: 20120911
  6. DIANEAL LOW CALCIUM [Suspect]
     Route: 033
     Dates: start: 20120911
  7. DIANEAL LOW CALCIUM [Suspect]
     Route: 033
     Dates: start: 20121221
  8. DIANEAL LOW CALCIUM [Suspect]
     Route: 033
     Dates: start: 20121221
  9. DIANEAL LOW CALCIUM [Suspect]
     Route: 033
     Dates: start: 20121221
  10. DIANEAL LOW CALCIUM [Suspect]
     Route: 033
     Dates: start: 20130212
  11. DIANEAL LOW CALCIUM [Suspect]
     Route: 033
     Dates: start: 20130212
  12. DIANEAL LOW CALCIUM [Suspect]
     Route: 033
     Dates: start: 20130212
  13. DIANEAL LOW CALCIUM [Suspect]
     Indication: PERITONEAL DIALYSIS
     Route: 033
  14. DIANEAL LOW CALCIUM [Suspect]
     Route: 033
  15. DIANEAL LOW CALCIUM [Suspect]
     Route: 033
  16. DIANEAL LOW CALCIUM [Suspect]
     Route: 033
     Dates: start: 20120911
  17. DIANEAL LOW CALCIUM [Suspect]
     Route: 033
     Dates: start: 20120911
  18. DIANEAL LOW CALCIUM [Suspect]
     Route: 033
     Dates: start: 20120911
  19. DIANEAL LOW CALCIUM [Suspect]
     Route: 033
     Dates: start: 20121221
  20. DIANEAL LOW CALCIUM [Suspect]
     Route: 033
     Dates: start: 20121221
  21. DIANEAL LOW CALCIUM [Suspect]
     Route: 033
     Dates: start: 20121221
  22. DIANEAL LOW CALCIUM [Suspect]
     Route: 033
     Dates: start: 20130207
  23. DIANEAL LOW CALCIUM [Suspect]
     Route: 033
     Dates: start: 20130207
  24. DIANEAL LOW CALCIUM [Suspect]
     Route: 033
     Dates: start: 20130207

REACTIONS (4)
  - Weight increased [Recovered/Resolved]
  - Fluid overload [Recovered/Resolved]
  - Fluid retention [Recovered/Resolved]
  - Polydipsia [Not Recovered/Not Resolved]
